FAERS Safety Report 8174764-8 (Version None)
Quarter: 2012Q1

REPORT INFORMATION
  Report Type: 
  Country: None (occurrence: None)
  Receive Date: 20120229
  Receipt Date: 20120215
  Transmission Date: 20120608
  Serious: Yes (Other)
  Sender: FDA-Public Use
  Company Number: PHHY2012NL013232

PATIENT
  Age: 41 Year
  Sex: Female

DRUGS (2)
  1. CLOZAPINE [Suspect]
     Indication: SCHIZOPHRENIA, DISORGANISED TYPE
     Dosage: 500 MG, UNK
  2. ST. JOHN'S WORT [Interacting]
     Dosage: 3 DF, QD

REACTIONS (4)
  - ANTIPSYCHOTIC DRUG LEVEL BELOW THERAPEUTIC [None]
  - SCHIZOPHRENIA, DISORGANISED TYPE [None]
  - PSYCHOTIC DISORDER [None]
  - DRUG INTERACTION [None]
